FAERS Safety Report 17638654 (Version 2)
Quarter: 2020Q2

REPORT INFORMATION
  Report Type: Report from Study
  Country: FR (occurrence: FR)
  Receive Date: 20200407
  Receipt Date: 20200410
  Transmission Date: 20200713
  Serious: Yes (Death, Other)
  Sender: FDA-Public Use
  Company Number: FR-EMD SERONO-9155685

PATIENT
  Age: 56 Year
  Sex: Male
  Weight: 80 kg

DRUGS (5)
  1. NORADRENALINE                      /00127501/ [Concomitant]
     Active Substance: NOREPINEPHRINE
     Indication: HYPOTENSION
     Dosage: 0.2-0.8 MG/ HR
     Route: 042
     Dates: start: 20200329
  2. REBIF [Suspect]
     Active Substance: INTERFERON BETA-1A
     Indication: CORONAVIRUS INFECTION
     Route: 058
     Dates: start: 20200323, end: 20200328
  3. KALETRA [Suspect]
     Active Substance: LOPINAVIR\RITONAVIR
     Indication: CORONAVIRUS INFECTION
     Dates: start: 20200323, end: 20200330
  4. ZYVOXID [Concomitant]
     Active Substance: LINEZOLID
     Indication: HYPERTHERMIA
     Route: 042
     Dates: start: 20200329
  5. PIPERACILLINA/TAZOBACTAM [Concomitant]
     Active Substance: PIPERACILLIN SODIUM\TAZOBACTAM SODIUM
     Indication: HYPERTHERMIA
     Route: 042
     Dates: start: 20200329

REACTIONS (7)
  - Hypotension [Fatal]
  - Acute kidney injury [Unknown]
  - Septic shock [Fatal]
  - Respiratory acidosis [Fatal]
  - Multiple organ dysfunction syndrome [Fatal]
  - Respiratory gas exchange disorder [Fatal]
  - Hyperthermia [Fatal]

NARRATIVE: CASE EVENT DATE: 20200329
